FAERS Safety Report 9637606 (Version 1)
Quarter: 2013Q4

REPORT INFORMATION
  Report Type: Spontaneous
  Country: GB (occurrence: GB)
  Receive Date: 20131022
  Receipt Date: 20131022
  Transmission Date: 20140711
  Serious: Yes (Other)
  Sender: FDA-Public Use
  Company Number: GB-JNJFOC-20131010078

PATIENT
  Sex: 0

DRUGS (2)
  1. INFLIXIMAB, RECOMBINANT [Suspect]
     Indication: INFLAMMATORY BOWEL DISEASE
     Route: 042
  2. INFLIXIMAB, RECOMBINANT [Suspect]
     Indication: ENTEROCUTANEOUS FISTULA
     Route: 042

REACTIONS (1)
  - Enterocutaneous fistula [Unknown]
